FAERS Safety Report 9679315 (Version 1)
Quarter: 2013Q4

REPORT INFORMATION
  Report Type: Spontaneous
  Country: US (occurrence: US)
  Receive Date: 20131109
  Receipt Date: 20131109
  Transmission Date: 20140711
  Serious: No
  Sender: FDA-Public Use
  Company Number: US-SANOFI-AVENTIS-2012SA090588

PATIENT
  Age: 28 Year
  Sex: Female

DRUGS (3)
  1. ALLEGRA-D [Suspect]
     Indication: HYPERSENSITIVITY
     Route: 048
  2. LISINOPRIL [Concomitant]
  3. FLONASE [Concomitant]

REACTIONS (2)
  - Heart rate increased [Unknown]
  - Blood pressure increased [Unknown]
